FAERS Safety Report 4688612-1 (Version None)
Quarter: 2005Q2

REPORT INFORMATION
  Report Type: 
  Country: None (occurrence: None)
  Receive Date: 20050608
  Receipt Date: 20050408
  Transmission Date: 20051028
  Serious: No
  Sender: FDA-Public Use
  Company Number: 2005-BP-05778BP

PATIENT
  Age: 60 Year
  Sex: Female

DRUGS (2)
  1. SPIRIVA [Suspect]
     Indication: CHRONIC OBSTRUCTIVE PULMONARY DISEASE
     Dosage: 18 MG (18 MG, 1 IN 1 D), IH
     Route: 055
     Dates: start: 20040601
  2. RESTORIL [Concomitant]

REACTIONS (4)
  - DYSPHONIA [None]
  - EAR PAIN [None]
  - LARYNGITIS [None]
  - PHARYNGOLARYNGEAL PAIN [None]
